FAERS Safety Report 8842652 (Version 2)
Quarter: 2015Q2

REPORT INFORMATION
  Report Type: Report from Study
  Country: US (occurrence: US)
  Receive Date: 20121016
  Receipt Date: 20150619
  Transmission Date: 20150821
  Serious: Yes (Death)
  Sender: FDA-Public Use
  Company Number: US-ROCHE-1132135

PATIENT
  Age: 60 Year
  Sex: Male

DRUGS (8)
  1. AVASTIN [Suspect]
     Active Substance: BEVACIZUMAB
     Indication: RECTAL CANCER
     Route: 042
  2. 5 FLUORO URACIL [Concomitant]
     Active Substance: FLUOROURACIL
     Route: 042
  3. LEUCOVORIN [Concomitant]
     Active Substance: LEUCOVORIN
     Route: 042
  4. OXALIPLATIN. [Concomitant]
     Active Substance: OXALIPLATIN
     Route: 042
  5. DECADRON [Concomitant]
     Active Substance: DEXAMETHASONE
     Route: 042
  6. XELODA [Suspect]
     Active Substance: CAPECITABINE
     Indication: RECTAL CANCER
     Dosage: FOR 14 DAYS THEN OFF FOR 7 DAYS
     Route: 048
  7. GRANISETRON [Concomitant]
     Active Substance: GRANISETRON
     Route: 042
  8. AVASTIN [Suspect]
     Active Substance: BEVACIZUMAB
     Route: 042

REACTIONS (8)
  - Arthralgia [Unknown]
  - Fatigue [Unknown]
  - Dyspnoea exertional [Unknown]
  - Neurotoxicity [Unknown]
  - Death [Fatal]
  - Chills [Unknown]
  - Hyperhidrosis [Unknown]
  - Lip dry [Unknown]

NARRATIVE: CASE EVENT DATE: 20110313
